FAERS Safety Report 10917839 (Version 1)
Quarter: 2015Q1

REPORT INFORMATION
  Report Type: Spontaneous
  Country: FR (occurrence: FR)
  Receive Date: 20150316
  Receipt Date: 20150316
  Transmission Date: 20150721
  Serious: Yes (Hospitalization, Other)
  Sender: FDA-Public Use
  Company Number: FR-GLAXOSMITHKLINE-FR2015GSK033320

PATIENT
  Age: 56 Year
  Sex: Male

DRUGS (8)
  1. ALKERAN [Suspect]
     Active Substance: MELPHALAN
     Indication: CHEMOTHERAPY
     Dosage: 273 MG, QD
     Route: 042
     Dates: start: 20150114
  2. ARACYTINE [Suspect]
     Active Substance: CYTARABINE
     Indication: CHEMOTHERAPY
     Dosage: 390 MG, BID
     Route: 042
     Dates: start: 20150110, end: 20150113
  3. ETOPOSIDE. [Suspect]
     Active Substance: ETOPOSIDE
     Indication: CHEMOTHERAPY
     Dosage: 195 MG, BID
     Route: 042
     Dates: start: 20150110, end: 20150113
  4. EMEND [Concomitant]
     Active Substance: APREPITANT
     Indication: ANTIEMETIC SUPPORTIVE CARE
     Dosage: 125 MG THE FIRST DAY THEN 80 MG
     Route: 048
     Dates: start: 20150108, end: 20150108
  5. LEVACT (BENDAMUSTINE HYDROCHLORIDE) [Suspect]
     Active Substance: BENDAMUSTINE HYDROCHLORIDE
     Indication: CHEMOTHERAPY
     Dosage: 390 MG, QD
     Route: 042
     Dates: start: 20150108, end: 20150109
  6. ZOPHREN [Concomitant]
     Active Substance: ONDANSETRON
     Indication: ANTIEMETIC SUPPORTIVE CARE
     Dosage: 8 MG, QD
     Route: 042
     Dates: start: 20150108, end: 20150116
  7. PLITICAN [Concomitant]
     Active Substance: ALIZAPRIDE HYDROCHLORIDE
     Indication: ANTIEMETIC SUPPORTIVE CARE
     Dosage: 250 MG, QD
     Route: 042
     Dates: start: 20150109, end: 20150113
  8. EMEND [Concomitant]
     Active Substance: APREPITANT
     Dosage: 125 MG THE FIRST DAY THEN 80 MG
     Route: 048
     Dates: start: 20150109, end: 20150116

REACTIONS (1)
  - Acute kidney injury [Recovered/Resolved]

NARRATIVE: CASE EVENT DATE: 20150113
